FAERS Safety Report 5406738-1 (Version None)
Quarter: 2007Q3

REPORT INFORMATION
  Report Type: 
  Country: None (occurrence: None)
  Receive Date: 20070802
  Receipt Date: 20070723
  Transmission Date: 20080115
  Serious: Yes (Other)
  Sender: FDA-Public Use
  Company Number: 2007VX001908

PATIENT
  Sex: Male

DRUGS (1)
  1. FLUOROURACIL [Suspect]
     Dosage: TID; TOP
     Route: 061

REACTIONS (5)
  - ERYTHEMA [None]
  - INFLAMMATION [None]
  - OEDEMA [None]
  - SCAB [None]
  - SKIN EXFOLIATION [None]
